FAERS Safety Report 23781523 (Version 1)
Quarter: 2024Q2

REPORT INFORMATION
  Report Type: Spontaneous
  Country: US (occurrence: US)
  Receive Date: 20240425
  Receipt Date: 20240425
  Transmission Date: 20240716
  Serious: Yes (Hospitalization, Other)
  Sender: FDA-Public Use
  Company Number: US-AUROBINDO-AUR-APL-2024-018788

PATIENT
  Age: 46 Year
  Sex: Male

DRUGS (1)
  1. URSODIOL [Suspect]
     Active Substance: URSODIOL
     Indication: Cholestatic liver injury
     Dosage: 900 MILLIGRAM, DAILY
     Route: 065

REACTIONS (2)
  - Liver injury [Recovered/Resolved]
  - Drug ineffective [Unknown]
